FAERS Safety Report 5817767-8 (Version None)
Quarter: 2008Q3

REPORT INFORMATION
  Report Type: 
  Country: None (occurrence: None)
  Receive Date: 20080722
  Receipt Date: 20080312
  Transmission Date: 20090109
  Serious: No
  Sender: FDA-Public Use
  Company Number: US-TYCO HEALTHCARE/MALLINCKRODT-T200800542

PATIENT

DRUGS (3)
  1. ULTRATAG [Suspect]
     Indication: RADIOISOTOPE SCAN
     Dosage: UNK, UNK
     Route: 042
     Dates: start: 20080130, end: 20080130
  2. ULTRA-TECHNEKOW [Concomitant]
     Indication: RADIOISOTOPE SCAN
     Dosage: 27.3 MCI, SINGLE
     Route: 042
     Dates: start: 20080130, end: 20080130
  3. O.T.C DETOX THERAPY [Concomitant]
     Indication: DETOXIFICATION

REACTIONS (1)
  - DRUG INEFFECTIVE [None]
